FAERS Safety Report 24018664 (Version 4)
Quarter: 2024Q3

REPORT INFORMATION
  Report Type: Report from Study
  Country: CA (occurrence: CA)
  Receive Date: 20240627
  Receipt Date: 20240705
  Transmission Date: 20241017
  Serious: Yes (Other)
  Sender: ABBVIE
  Company Number: CA-ABBVIE-5817452

PATIENT
  Age: 66 Year
  Sex: Female

DRUGS (1)
  1. SKYRIZI [Suspect]
     Active Substance: RISANKIZUMAB-RZAA
     Indication: Crohn^s disease
     Route: 058
     Dates: start: 20230215, end: 202404

REACTIONS (3)
  - Hip surgery [Unknown]
  - Postoperative wound infection [Unknown]
  - Incision site erythema [Not Recovered/Not Resolved]

NARRATIVE: CASE EVENT DATE: 20240101
